FAERS Safety Report 8480936 (Version 3)
Quarter: 2014Q1

REPORT INFORMATION
  Report Type: Report from Study
  Country: ES (occurrence: ES)
  Receive Date: 20120328
  Receipt Date: 20140312
  Transmission Date: 20141002
  Serious: Yes (Hospitalization)
  Sender: FDA-Public Use
  Company Number: ES-ROCHE-1051140

PATIENT
  Age: 54 Year
  Sex: Female
  Weight: 68.8 kg

DRUGS (6)
  1. VEMURAFENIB [Suspect]
     Indication: METASTATIC MALIGNANT MELANOMA
     Route: 048
     Dates: start: 20120302
  2. FOLIC ACID [Concomitant]
     Route: 065
     Dates: start: 20120214
  3. BEROCCA TABLETS [Concomitant]
     Route: 065
     Dates: start: 20120214
  4. OPTOVITE B12 [Concomitant]
     Route: 065
     Dates: start: 20120214
  5. TRYPTIZOL [Concomitant]
     Route: 065
     Dates: start: 20120214
  6. OMEPRAZOLE [Concomitant]
     Route: 065
     Dates: start: 20120227

REACTIONS (1)
  - Epilepsy [Recovered/Resolved]
